FAERS Safety Report 7725935-3 (Version None)
Quarter: 2011Q3

REPORT INFORMATION
  Report Type: 
  Country: None (occurrence: None)
  Receive Date: 20110902
  Receipt Date: 20110823
  Transmission Date: 20111222
  Serious: Yes (Death, Life-Threatening, Hospitalization, Other)
  Sender: FDA-Public Use
  Company Number: GR-ABBOTT-11P-066-0848920-02

PATIENT
  Sex: Female
  Weight: 40 kg

DRUGS (14)
  1. MESALAMINE [Concomitant]
     Indication: CROHN'S DISEASE
     Dates: start: 20110220
  2. MEDROL [Concomitant]
     Indication: ABDOMINAL DISCOMFORT
     Dates: start: 20110801, end: 20110809
  3. HUMIRA [Suspect]
     Indication: CROHN'S DISEASE
     Route: 058
  4. TYGACIL [Concomitant]
     Indication: ABDOMINAL INFECTION
  5. HUMIRA [Suspect]
     Route: 058
  6. EFFEXOR [Concomitant]
     Indication: DEPRESSION
     Dates: start: 20110101
  7. HUMIRA [Suspect]
     Route: 058
     Dates: start: 20090625, end: 20110606
  8. MEDROL [Concomitant]
     Dates: start: 20110801, end: 20110809
  9. PREDNISOLONE [Concomitant]
     Indication: POSTOPERATIVE FEVER
     Dates: start: 20110809, end: 20110821
  10. REMICADE [Concomitant]
     Indication: CROHN'S DISEASE
     Dates: start: 20110606
  11. REMICADE [Concomitant]
     Indication: DIARRHOEA
  12. MEDROL [Concomitant]
     Indication: DIARRHOEA
     Dates: start: 20110220, end: 20110604
  13. FERROUS SULFATE TAB [Concomitant]
     Indication: IRON DEFICIENCY ANAEMIA
     Dates: start: 20081104
  14. TYGACIL [Concomitant]
     Indication: PYREXIA
     Dates: start: 20110809, end: 20110821

REACTIONS (4)
  - PERITONEAL HAEMORRHAGE [None]
  - HEPATIC RUPTURE [None]
  - ACUTE RESPIRATORY DISTRESS SYNDROME [None]
  - SEPSIS [None]
